FAERS Safety Report 6768771-7 (Version None)
Quarter: 2010Q2

REPORT INFORMATION
  Report Type: 
  Country: None (occurrence: None)
  Receive Date: 20100611
  Receipt Date: 20100608
  Transmission Date: 20101027
  Serious: Yes (Hospitalization)
  Sender: FDA-Public Use
  Company Number: 1000013834

PATIENT
  Age: 63 Year
  Sex: Female

DRUGS (7)
  1. THYROID TAB [Suspect]
     Indication: HYPOTHYROIDISM
     Dosage: 150 MG (150 MG, 1 IN 1 D), ORAL
     Route: 048
     Dates: start: 20080101, end: 20100101
  2. THYROID TAB [Suspect]
     Indication: HYPOTHYROIDISM
     Dosage: 60 MG (60 MG, QOD), ORAL, 1 IN 1 D, ORAL
     Route: 048
     Dates: start: 20100101, end: 20100301
  3. THYROID TAB [Suspect]
     Indication: HYPOTHYROIDISM
     Dosage: 60 MG (60 MG, QOD), ORAL, 1 IN 1 D, ORAL
     Route: 048
     Dates: start: 20100301, end: 20100505
  4. HYDROCORTISONE [Concomitant]
  5. FLAGYL [Concomitant]
  6. MULTIPLE SUPPLEMENTS [Concomitant]
  7. VITAMINS [Concomitant]

REACTIONS (7)
  - ALOPECIA [None]
  - ATRIAL FIBRILLATION [None]
  - EXTRASYSTOLES [None]
  - TREMOR [None]
  - URINARY TRACT INFECTION [None]
  - VISUAL IMPAIRMENT [None]
  - WEIGHT INCREASED [None]
